FAERS Safety Report 5427184-0 (Version None)
Quarter: 2007Q3

REPORT INFORMATION
  Report Type: 
  Country: None (occurrence: None)
  Receive Date: 20070828
  Receipt Date: 20070815
  Transmission Date: 20080115
  Serious: Yes (Hospitalization)
  Sender: FDA-Public Use
  Company Number: US-TYCO HEALTHCARE/MALLINCKRODT-T200700952

PATIENT

DRUGS (2)
  1. METHADOSE [Suspect]
     Route: 048
     Dates: start: 20070129, end: 20070129
  2. COCAINE [Suspect]
     Route: 048
     Dates: start: 20070129, end: 20070129

REACTIONS (2)
  - ACCIDENTAL OVERDOSE [None]
  - LOSS OF CONSCIOUSNESS [None]
